FAERS Safety Report 6917566-X (Version None)
Quarter: 2010Q3

REPORT INFORMATION
  Report Type: 
  Country: None (occurrence: None)
  Receive Date: 20100806
  Receipt Date: 20100721
  Transmission Date: 20110219
  Serious: Yes (Hospitalization)
  Sender: FDA-Public Use
  Company Number: A-CH2006-11780

PATIENT
  Age: 29 Year
  Sex: Male
  Weight: 85 kg

DRUGS (13)
  1. ZAVESCA [Suspect]
     Indication: GAUCHER'S DISEASE
     Dosage: 100 MG, BID, ORAL; 100 MG, QD, ORAL; 100 MG, TID, ORAL; 400 MG, TID, ORAL
     Route: 048
     Dates: start: 20060120, end: 20060130
  2. ZAVESCA [Suspect]
     Indication: GAUCHER'S DISEASE
     Dosage: 100 MG, BID, ORAL; 100 MG, QD, ORAL; 100 MG, TID, ORAL; 400 MG, TID, ORAL
     Route: 048
     Dates: start: 20060210, end: 20060201
  3. ZAVESCA [Suspect]
     Indication: GAUCHER'S DISEASE
     Dosage: 100 MG, BID, ORAL; 100 MG, QD, ORAL; 100 MG, TID, ORAL; 400 MG, TID, ORAL
     Route: 048
     Dates: start: 20060131, end: 20060209
  4. ZAVESCA [Suspect]
     Indication: GAUCHER'S DISEASE
     Dosage: 100 MG, BID, ORAL; 100 MG, QD, ORAL; 100 MG, TID, ORAL; 400 MG, TID, ORAL
     Route: 048
     Dates: start: 20060201
  5. ZAVESCA [Suspect]
     Indication: GAUCHER'S DISEASE
     Dosage: 100 MG, BID, ORAL; 100 MG, QD, ORAL; 100 MG, TID, ORAL; 400 MG, TID, ORAL
     Route: 048
     Dates: start: 20091005
  6. CEREZYME [Suspect]
     Dates: start: 20050101
  7. IMODIUM [Concomitant]
  8. ZONEGRAN [Concomitant]
  9. DEPAKENE [Concomitant]
  10. PHENOBARBITAL TAB [Concomitant]
  11. TOPIRAMATE [Concomitant]
  12. URBANYL (CLOBAZAM) [Concomitant]
  13. ALLOPURINOL [Concomitant]

REACTIONS (19)
  - ABDOMINAL PAIN [None]
  - ACTIVITIES OF DAILY LIVING IMPAIRED [None]
  - BACK PAIN [None]
  - BONE PAIN [None]
  - CONVULSION [None]
  - DIARRHOEA [None]
  - DRUG HYPERSENSITIVITY [None]
  - EPILEPSY [None]
  - HEPATIC STEATOSIS [None]
  - HYPERSENSITIVITY [None]
  - MYOCLONUS [None]
  - NEUROPATHY PERIPHERAL [None]
  - OSTEOPENIA [None]
  - PERIPHERAL SENSORY NEUROPATHY [None]
  - PLATELET COUNT DECREASED [None]
  - POLYNEUROPATHY [None]
  - PYREXIA [None]
  - STATUS EPILEPTICUS [None]
  - TREMOR [None]
